FAERS Safety Report 7812246-0 (Version None)
Quarter: 2011Q4

REPORT INFORMATION
  Report Type: 
  Country: None (occurrence: None)
  Receive Date: 20111013
  Receipt Date: 20111003
  Transmission Date: 20120403
  Serious: Yes (Other)
  Sender: FDA-Public Use
  Company Number: US-BAYER-2010-009151

PATIENT
  Sex: Female
  Weight: 91 kg

DRUGS (10)
  1. YASMIN [Suspect]
     Dosage: UNK
     Dates: start: 20090201, end: 20090501
  2. XANAX [Concomitant]
  3. VESICARE [Concomitant]
  4. YASMIN [Suspect]
     Indication: ENDOMETRIOSIS
     Dosage: UNK
     Dates: start: 20040703, end: 20080701
  5. YASMIN [Suspect]
     Dosage: UNK
     Dates: start: 20030101, end: 20100101
  6. DROSPIRENONE AND ETHINYL ESTRADIOL [Suspect]
     Dosage: UNK
     Dates: start: 20030101, end: 20100101
  7. LEXAPRO [Concomitant]
  8. DROSPIRENONE AND ETHINYL ESTRADIOL [Suspect]
     Indication: ENDOMETRIOSIS
     Dosage: UNK
     Dates: start: 20080701, end: 20090201
  9. VALTREX [Concomitant]
  10. IBUPROFEN [Concomitant]

REACTIONS (5)
  - PAIN [None]
  - INJURY [None]
  - BILIARY COLIC [None]
  - CHOLECYSTITIS CHRONIC [None]
  - GALLBLADDER DISORDER [None]
